FAERS Safety Report 11799681 (Version 1)
Quarter: 2015Q4

REPORT INFORMATION
  Report Type: Spontaneous
  Country: US (occurrence: US)
  Receive Date: 20151203
  Receipt Date: 20151203
  Transmission Date: 20160305
  Serious: Yes (Other)
  Sender: FDA-Public Use
  Company Number: US-PFIZER INC-2015420514

PATIENT
  Sex: Male

DRUGS (1)
  1. QUILLIVANT XR [Suspect]
     Active Substance: METHYLPHENIDATE HYDROCHLORIDE
     Dosage: UNK

REACTIONS (6)
  - Hallucination, auditory [Unknown]
  - Paraesthesia [Unknown]
  - Thinking abnormal [Unknown]
  - Pain in extremity [Unknown]
  - Palpitations [Unknown]
  - Myocardial infarction [Unknown]
